FAERS Safety Report 5328290-1 (Version None)
Quarter: 2007Q2

REPORT INFORMATION
  Report Type: 
  Country: None (occurrence: None)
  Receive Date: 20070518
  Receipt Date: 20070507
  Transmission Date: 20071010
  Serious: Yes (Other)
  Sender: FDA-Public Use
  Company Number: US-JNJFOC-20070501567

PATIENT
  Sex: Female

DRUGS (15)
  1. REMICADE [Suspect]
     Indication: POLYARTHRITIS
     Route: 042
  2. REMICADE [Suspect]
     Indication: RHEUMATOID ARTHRITIS
     Dosage: STARTED IN THE SPRING
     Route: 042
  3. MOBIC [Concomitant]
     Indication: RHEUMATOID ARTHRITIS
  4. METHOTREXATE [Concomitant]
     Indication: POLYARTHRITIS
  5. METHOTREXATE [Concomitant]
     Indication: RHEUMATOID ARTHRITIS
  6. ANTI INFLAMMATORY [Concomitant]
  7. NEXIUM [Concomitant]
  8. CRESTOR [Concomitant]
  9. VITAMINS [Concomitant]
  10. TRICLOR [Concomitant]
  11. AMITRIPTYLINE HCL [Concomitant]
  12. ALPRAZOLAM [Concomitant]
  13. RELAFEN [Concomitant]
     Indication: RHEUMATOID ARTHRITIS
  14. ASPIRIN [Concomitant]
  15. HORMONE REPLACEMENT THERAPY [Concomitant]

REACTIONS (3)
  - BENIGN BREAST NEOPLASM [None]
  - SQUAMOUS CELL CARCINOMA [None]
  - WOUND INFECTION STAPHYLOCOCCAL [None]
